FAERS Safety Report 12446208 (Version 1)
Quarter: 2016Q2

REPORT INFORMATION
  Report Type: Spontaneous
  Country: US (occurrence: None)
  Receive Date: 20160607
  Receipt Date: 20160607
  Transmission Date: 20160815
  Serious: Yes (Hospitalization, Disabling)
  Sender: FDA-Public Use
  Company Number: None

PATIENT
  Age: 38 Year
  Sex: Female
  Weight: 73.48 kg

DRUGS (16)
  1. METHYLPREDNISOLONE. [Concomitant]
     Active Substance: METHYLPREDNISOLONE
  2. CYCLOBENAZAPRINE [Concomitant]
  3. LYRICA [Concomitant]
     Active Substance: PREGABALIN
  4. BUTRANS [Concomitant]
     Active Substance: BUPRENORPHINE
  5. GABAPENTIN, 300 MG [Suspect]
     Active Substance: GABAPENTIN
     Indication: NEUROPATHY PERIPHERAL
     Route: 048
     Dates: start: 20160323, end: 20160420
  6. DECADRON+DEPOMEDROL [Concomitant]
  7. CRESTOR [Concomitant]
     Active Substance: ROSUVASTATIN CALCIUM
  8. CLARITIN [Concomitant]
     Active Substance: LORATADINE
  9. NAPROXEN. [Concomitant]
     Active Substance: NAPROXEN
  10. FLONASE [Concomitant]
     Active Substance: FLUTICASONE PROPIONATE
  11. SYNTHROID [Concomitant]
     Active Substance: LEVOTHYROXINE SODIUM
  12. TORADOL [Concomitant]
     Active Substance: KETOROLAC TROMETHAMINE
  13. VIT D 3 [Concomitant]
  14. VITAMIN B COMPLEX [Concomitant]
     Active Substance: CYANOCOBALAMIN\DEXPANTHENOL\NIACINAMIDE\PYRIDOXINE HYDROCHLORIDE\RIBOFLAVIN 5^-PHOSPHATE SODIUM\THIAMINE HYDROCHLORIDE\VITAMIN B COMPLEX
  15. PROAIR HFA [Concomitant]
     Active Substance: ALBUTEROL SULFATE
  16. HYDROMORPHONE [Concomitant]
     Active Substance: HYDROMORPHONE

REACTIONS (8)
  - Diarrhoea [None]
  - Gastritis [None]
  - Colitis [None]
  - Intestinal obstruction [None]
  - Muscle spasms [None]
  - Nausea [None]
  - Confusional state [None]
  - Abdominal pain [None]

NARRATIVE: CASE EVENT DATE: 20160403
